FAERS Safety Report 5811906-0 (Version None)
Quarter: 2008Q3

REPORT INFORMATION
  Report Type: 
  Country: None (occurrence: None)
  Receive Date: 20080716
  Receipt Date: 20080714
  Transmission Date: 20090109
  Serious: Yes (Death)
  Sender: FDA-Public Use
  Company Number: NL-SANOFI-SYNTHELABO-F01200801161

PATIENT
  Sex: Female

DRUGS (3)
  1. BEVACIZUMAB [Suspect]
     Route: 041
     Dates: start: 20080605, end: 20080605
  2. CAPECITABINE [Suspect]
     Route: 048
     Dates: start: 20080605, end: 20080605
  3. ELOXATIN [Suspect]
     Indication: COLORECTAL CANCER
     Route: 041
     Dates: start: 20080605, end: 20080605

REACTIONS (1)
  - DISEASE PROGRESSION [None]
